FAERS Safety Report 6350184 (Version 2)
Quarter: 2017Q3

REPORT INFORMATION
  Report Type: Spontaneous
  Country: GB (occurrence: GB)
  Receive Date: 20070705
  Receipt Date: 20170824
  Transmission Date: 20171128
  Serious: Yes (Other)
  Sender: FDA-Public Use
  Company Number: GB-PFIZER INC-2007053078

PATIENT
  Age: 18 Year
  Sex: Female

DRUGS (4)
  1. MISOPROSTOL. [Suspect]
     Active Substance: MISOPROSTOL
     Indication: ABORTION INDUCED
     Dosage: 400 UG, UNK
     Route: 048
     Dates: start: 20070601, end: 20070604
  2. CO-DYDRAMOL [Concomitant]
     Active Substance: ACETAMINOPHEN\DIHYDROCODEINE
     Route: 048
     Dates: start: 20070603, end: 20070604
  3. SYNTOCINON [Concomitant]
     Active Substance: OXYTOCIN
     Route: 042
  4. MIFEPRISTONE [Concomitant]
     Active Substance: MIFEPRISTONE
     Indication: ABORTION INDUCED
     Route: 048
     Dates: start: 20070530, end: 20070530

REACTIONS (3)
  - Loss of consciousness [Recovered/Resolved]
  - Tonic clonic movements [Recovered/Resolved]
  - Urinary incontinence [Recovered/Resolved]

NARRATIVE: CASE EVENT DATE: 20070605
